FAERS Safety Report 7216435-8 (Version None)
Quarter: 2011Q1

REPORT INFORMATION
  Report Type: 
  Country: None (occurrence: None)
  Receive Date: 20110107
  Receipt Date: 20101216
  Transmission Date: 20110831
  Serious: No
  Sender: FDA-Public Use
  Company Number: US-B.I. PHARMACEUTICALS,INC./RIDGEFIELD-2010-BP-14824BP

PATIENT
  Sex: Female

DRUGS (2)
  1. TYLENOL-500 [Concomitant]
  2. MOBIC [Suspect]

REACTIONS (5)
  - ARTHRALGIA [None]
  - FATIGUE [None]
  - PAIN [None]
  - INFLUENZA LIKE ILLNESS [None]
  - MYALGIA [None]
